FAERS Safety Report 6527699-8 (Version None)
Quarter: 2010Q1

REPORT INFORMATION
  Report Type: 
  Country: None (occurrence: None)
  Receive Date: 20100106
  Receipt Date: 20091224
  Transmission Date: 20100710
  Serious: Yes (Other)
  Sender: FDA-Public Use
  Company Number: AT-RANBAXY-2009RR-30256

PATIENT
  Age: 63 Year
  Sex: Male

DRUGS (9)
  1. METFORMIN HCL [Suspect]
     Dosage: 850 MG, QD
  2. CISPLATIN [Suspect]
     Indication: URETHRAL CANCER
  3. GEMCITABINE [Suspect]
     Indication: URETHRAL CANCER
  4. PIPERACILLIN AND TAZOBACTAM [Suspect]
  5. LINEZOLID [Suspect]
     Indication: URINARY TRACT INFECTION STAPHYLOCOCCAL
  6. PARACETAMOL [Suspect]
     Dosage: 500 MG, TID
  7. LISINOPRIL AND HYDROCHLOROTHIAZIDE [Suspect]
     Dosage: UNK
  8. ESOMEPRAZOLE SODIUM (NEXIUM) [Suspect]
  9. CARBOPLATIN [Suspect]

REACTIONS (2)
  - DRUG INTERACTION [None]
  - RENAL IMPAIRMENT [None]
